FAERS Safety Report 9060558 (Version 1)
Quarter: 2013Q1

REPORT INFORMATION
  Report Type: Spontaneous
  Country: IT (occurrence: FR)
  Receive Date: 20130212
  Receipt Date: 20130212
  Transmission Date: 20140127
  Serious: Yes (Hospitalization)
  Sender: FDA-Public Use
  Company Number: FR-FRI-1000042526

PATIENT
  Age: 84 None
  Sex: Male

DRUGS (10)
  1. NEBIVOLOL [Suspect]
     Dosage: 1.25 MG
     Route: 048
     Dates: end: 20121220
  2. DIFFU K [Suspect]
     Route: 048
     Dates: end: 20121220
  3. APROVEL [Suspect]
     Indication: HYPERTENSION
     Dosage: 300 MG
     Route: 048
     Dates: end: 20121220
  4. FUROSEMIDE [Concomitant]
     Dosage: 120 MG
     Route: 048
     Dates: end: 20121220
  5. ZANIDIP [Concomitant]
     Indication: HYPERTENSION
     Dosage: 20 MG
     Route: 048
     Dates: end: 20121220
  6. EUPRESSYL [Concomitant]
     Indication: HYPERTENSION
     Dosage: 120 MG
     Route: 048
     Dates: end: 20121220
  7. GLUCOPHAGE [Concomitant]
     Indication: DIABETES MELLITUS
     Dosage: 3000 MG
     Route: 048
     Dates: end: 20121220
  8. PREVISCAN [Concomitant]
     Indication: ATRIAL FIBRILLATION
     Dosage: 10 MG
     Route: 048
  9. TRILEPTAL [Concomitant]
     Dosage: 400 MG
     Route: 048
     Dates: start: 200405
  10. TARDYFERON [Concomitant]
     Route: 048
     Dates: end: 20121220

REACTIONS (2)
  - Renal failure acute [Recovered/Resolved]
  - Drug interaction [Recovered/Resolved]
